FAERS Safety Report 10258260 (Version 1)
Quarter: 2014Q2

REPORT INFORMATION
  Report Type: Spontaneous
  Country: GB (occurrence: GB)
  Receive Date: 20140625
  Receipt Date: 20140625
  Transmission Date: 20141212
  Serious: Yes (Death)
  Sender: FDA-Public Use
  Company Number: GB-ACTAVIS-2014-13224

PATIENT
  Age: 14 Year
  Sex: Male
  Weight: 62 kg

DRUGS (2)
  1. FLUOXETINE (UNKNOWN) [Suspect]
     Indication: DEPRESSION
     Dosage: 5 ML, DAILY
     Route: 048
     Dates: start: 20140326, end: 20140330
  2. FLUOXETINE (UNKNOWN) [Suspect]
     Dosage: 2.5 ML, DAILY
     Route: 048
     Dates: start: 20140320, end: 20140325

REACTIONS (1)
  - Completed suicide [Fatal]
